FAERS Safety Report 7858604-X (Version None)
Quarter: 2011Q4

REPORT INFORMATION
  Report Type: 
  Country: None (occurrence: None)
  Receive Date: 20111027
  Receipt Date: 20101220
  Transmission Date: 20120403
  Serious: Yes (Hospitalization)
  Sender: FDA-Public Use
  Company Number: US-BAYER-201027877NA

PATIENT
  Sex: Female

DRUGS (6)
  1. ADDERALL 5 [Concomitant]
  2. YASMIN [Suspect]
     Indication: PRODUCT USED FOR UNKNOWN INDICATION
     Route: 048
     Dates: start: 20070904, end: 20071005
  3. PHENERGAN HCL [Concomitant]
  4. YAZ [Suspect]
     Indication: PRODUCT USED FOR UNKNOWN INDICATION
     Route: 048
     Dates: start: 20071005, end: 20080801
  5. ALEVE [Concomitant]
     Indication: MIGRAINE
  6. TYLOX [Concomitant]

REACTIONS (3)
  - VITH NERVE PARALYSIS [None]
  - INTRACRANIAL VENOUS SINUS THROMBOSIS [None]
  - NECK PAIN [None]
